FAERS Safety Report 21681950 (Version 2)
Quarter: 2023Q1

REPORT INFORMATION
  Report Type: Report from Study
  Country: US (occurrence: US)
  Receive Date: 20221205
  Receipt Date: 20230211
  Transmission Date: 20230418
  Serious: Yes (Hospitalization, Other)
  Sender: FDA-Public Use
  Company Number: US-ABBVIE-4222403

PATIENT
  Age: 69 Year
  Sex: Female
  Weight: 62 kg

DRUGS (4)
  1. HUMIRA [Suspect]
     Active Substance: ADALIMUMAB
     Indication: Crohn^s disease
     Route: 058
     Dates: start: 20211125, end: 202209
  2. HUMIRA [Suspect]
     Active Substance: ADALIMUMAB
     Route: 058
     Dates: start: 202212
  3. GABAPENTIN [Concomitant]
     Active Substance: GABAPENTIN
     Indication: Fibromyalgia
  4. PRAVASTATIN [Concomitant]
     Active Substance: PRAVASTATIN
     Indication: Blood cholesterol

REACTIONS (6)
  - Volvulus [Recovering/Resolving]
  - Abdominal pain [Recovering/Resolving]
  - Intestinal obstruction [Unknown]
  - Gastrointestinal scarring [Unknown]
  - Intestinal obstruction [Unknown]
  - Intestinal obstruction [Unknown]

NARRATIVE: CASE EVENT DATE: 20211101
